FAERS Safety Report 13061716 (Version 1)
Quarter: 2016Q4

REPORT INFORMATION
  Report Type: Spontaneous
  Country: US (occurrence: US)
  Receive Date: 20161226
  Receipt Date: 20161226
  Transmission Date: 20170207
  Serious: No
  Sender: FDA-Public Use
  Company Number: US-NOVEN PHARMACEUTICALS, INC.-US2016000072

PATIENT

DRUGS (1)
  1. MINIVELLE [Suspect]
     Active Substance: ESTRADIOL
     Indication: IN VITRO FERTILISATION
     Dosage: 0.4 MG (USING 4 PATCHES AT A TIME), FOR 3 DAYS
     Route: 062
     Dates: start: 20151208, end: 20160116

REACTIONS (8)
  - Application site rash [Unknown]
  - Application site urticaria [Unknown]
  - Off label use [Recovered/Resolved]
  - Prescribed overdose [Recovered/Resolved]
  - Application site pruritus [Unknown]
  - Wrong technique in product usage process [Recovered/Resolved]
  - Application site pain [Unknown]
  - Application site erythema [Unknown]

NARRATIVE: CASE EVENT DATE: 20151208
